FAERS Safety Report 18826754 (Version 1)
Quarter: 2021Q1

REPORT INFORMATION
  Report Type: Spontaneous
  Country: US (occurrence: US)
  Receive Date: 20210201
  Receipt Date: 20210201
  Transmission Date: 20210419
  Serious: No
  Sender: FDA-Public Use
  Company Number: US-ABBVIE-20K-163-3413725-00

PATIENT
  Age: 9 Year
  Sex: Male
  Weight: 26.33 kg

DRUGS (1)
  1. HUMIRA [Suspect]
     Active Substance: ADALIMUMAB
     Indication: JUVENILE IDIOPATHIC ARTHRITIS
     Route: 058
     Dates: start: 20200102

REACTIONS (2)
  - C-reactive protein abnormal [Unknown]
  - Injection site pain [Unknown]

NARRATIVE: CASE EVENT DATE: 202001
